FAERS Safety Report 5600859-6 (Version None)
Quarter: 2008Q1

REPORT INFORMATION
  Report Type: 
  Country: None (occurrence: None)
  Receive Date: 20080117
  Receipt Date: 20080117
  Transmission Date: 20080703
  Serious: Yes (Other)
  Sender: FDA-Public Use
  Company Number: None

PATIENT
  Age: 58 Year
  Sex: Female
  Weight: 74.8435 kg

DRUGS (5)
  1. BUPROPION XL 300MG [Suspect]
     Indication: MAJOR DEPRESSION
     Dosage: 300MG/DAY ABOUT 1-2 WEEKS AT MOST
  2. LEXAPRO [Concomitant]
  3. PROVIGIL [Concomitant]
  4. TRAZODONE HCL [Concomitant]
  5. KLONOPIN [Concomitant]

REACTIONS (2)
  - HEADACHE [None]
  - PHARMACEUTICAL PRODUCT COMPLAINT [None]
